FAERS Safety Report 9054118 (Version 5)
Quarter: 2014Q1

REPORT INFORMATION
  Report Type: Spontaneous
  Country: US (occurrence: US)
  Receive Date: 20130208
  Receipt Date: 20140117
  Transmission Date: 20141002
  Serious: Yes (Other)
  Sender: FDA-Public Use
  Company Number: US-PFIZER INC-2013048947

PATIENT
  Age: 71 Year
  Sex: Male

DRUGS (3)
  1. INLYTA [Suspect]
     Indication: RENAL CANCER
     Dosage: 5 MG, 1X/DAY
     Route: 048
     Dates: start: 20130112
  2. INLYTA [Suspect]
     Dosage: 5 MG, DAILY
     Route: 048
  3. INLYTA [Suspect]
     Dosage: 5 MG, DAILY
     Route: 048

REACTIONS (8)
  - Eye haemorrhage [Unknown]
  - Skin exfoliation [Not Recovered/Not Resolved]
  - Hypertension [Not Recovered/Not Resolved]
  - Pruritus [Recovered/Resolved]
  - Hyperchlorhydria [Unknown]
  - Pruritus generalised [Not Recovered/Not Resolved]
  - Disease progression [Unknown]
  - Renal cancer [Unknown]
